FAERS Safety Report 5385039-4 (Version None)
Quarter: 2007Q3

REPORT INFORMATION
  Report Type: 
  Country: None (occurrence: None)
  Receive Date: 20070712
  Receipt Date: 20070705
  Transmission Date: 20080115
  Serious: Yes (Other)
  Sender: FDA-Public Use
  Company Number: PHEH2007US09678

PATIENT
  Sex: Female

DRUGS (1)
  1. ENABLEX [Suspect]

REACTIONS (2)
  - COLECTOMY [None]
  - DRUG INEFFECTIVE [None]
